FAERS Safety Report 11551242 (Version 1)
Quarter: 2015Q3

REPORT INFORMATION
  Report Type: Spontaneous
  Country: US (occurrence: US)
  Receive Date: 20150903
  Receipt Date: 20150903
  Transmission Date: 20151125
  Serious: No
  Sender: FDA-Public Use
  Company Number: US-ELI_LILLY_AND_COMPANY-US201209002390

PATIENT
  Sex: Female

DRUGS (3)
  1. BYETTA [Interacting]
     Active Substance: EXENATIDE
  2. IBUPROFEN. [Concomitant]
     Active Substance: IBUPROFEN
     Indication: ARTHRITIS
  3. HUMALOG [Suspect]
     Active Substance: INSULIN LISPRO
     Indication: BLOOD GLUCOSE INCREASED
     Dosage: UNK
     Dates: start: 20120902

REACTIONS (3)
  - Drug interaction [Unknown]
  - Diarrhoea [Unknown]
  - Abdominal discomfort [Unknown]
